FAERS Safety Report 18057825 (Version 1)
Quarter: 2020Q3

REPORT INFORMATION
  Report Type: Spontaneous
  Country: US (occurrence: US)
  Receive Date: 20200723
  Receipt Date: 20200723
  Transmission Date: 20201103
  Serious: No
  Sender: FDA-Public Use
  Company Number: US-BRISTOL-MYERS SQUIBB COMPANY-BMS-2020-057854

PATIENT

DRUGS (2)
  1. ELIQUIS [Suspect]
     Active Substance: APIXABAN
     Indication: RENAL VEIN THROMBOSIS
     Dosage: 5 MILLIGRAM, BID
     Route: 065
  2. POSACONAZOLE [Concomitant]
     Active Substance: POSACONAZOLE
     Indication: MENINGITIS CRYPTOCOCCAL
     Dosage: DR 300MG DAILY
     Route: 065

REACTIONS (1)
  - Intentional product use issue [Unknown]
